FAERS Safety Report 6089443-0 (Version None)
Quarter: 2009Q1

REPORT INFORMATION
  Report Type: 
  Country: None (occurrence: None)
  Receive Date: 20090220
  Receipt Date: 20090220
  Transmission Date: 20090719
  Serious: Yes (Other)
  Sender: FDA-Public Use
  Company Number: None

PATIENT
  Age: 18 Year
  Sex: Male
  Weight: 58.9676 kg

DRUGS (1)
  1. SORTRET 40MG  RANBAXY [Suspect]
     Indication: ACNE
     Dosage: 60 CAPSULES BID PO
     Route: 048
     Dates: start: 20090130, end: 20090213

REACTIONS (2)
  - DIARRHOEA [None]
  - WEIGHT DECREASED [None]
